FAERS Safety Report 13034467 (Version 2)
Quarter: 2017Q1

REPORT INFORMATION
  Report Type: Spontaneous
  Country: US (occurrence: US)
  Receive Date: 20161216
  Receipt Date: 20170210
  Transmission Date: 20170428
  Serious: Yes (Hospitalization)
  Sender: FDA-Public Use
  Company Number: US-BIOGEN-2016BI00331193

PATIENT
  Sex: Female

DRUGS (1)
  1. TYSABRI [Suspect]
     Active Substance: NATALIZUMAB
     Indication: MULTIPLE SCLEROSIS
     Route: 042
     Dates: start: 20161108

REACTIONS (3)
  - Multiple sclerosis relapse [Unknown]
  - Gastrointestinal disorder [Not Recovered/Not Resolved]
  - Bladder disorder [Not Recovered/Not Resolved]
